FAERS Safety Report 19893971 (Version 2)
Quarter: 2021Q4

REPORT INFORMATION
  Report Type: Report from Study
  Country: CA (occurrence: CA)
  Receive Date: 20210928
  Receipt Date: 20211021
  Transmission Date: 20220303
  Serious: Yes (Hospitalization)
  Sender: FDA-Public Use
  Company Number: CA-BAUSCH-BL-2021-032719

PATIENT
  Age: 62 Year
  Sex: Male

DRUGS (17)
  1. SILIQ [Suspect]
     Active Substance: BRODALUMAB
     Indication: Psoriasis
     Dosage: 90/8MG; WEEK 0, 1, 2
     Route: 058
     Dates: start: 20210526, end: 20210609
  2. SILIQ [Suspect]
     Active Substance: BRODALUMAB
     Dosage: 90/8MG, EVERY 2 WEEKS
     Route: 058
     Dates: start: 2021
  3. QUETIAPINE [Concomitant]
     Active Substance: QUETIAPINE
     Indication: Schizophrenia
     Route: 048
     Dates: start: 2014
  4. JANUVIA [Concomitant]
     Active Substance: SITAGLIPTIN PHOSPHATE
     Indication: Type 2 diabetes mellitus
     Route: 048
     Dates: start: 2013
  5. CLONIDINE HYDROCHLORIDE [Concomitant]
     Active Substance: CLONIDINE HYDROCHLORIDE
     Indication: Hypertension
     Dosage: EVERY BEDTIME
     Route: 048
     Dates: start: 2013
  6. AMLODIPINE [Concomitant]
     Active Substance: AMLODIPINE BESYLATE
     Indication: Hypertension
     Route: 048
     Dates: start: 2020
  7. CLOPIDOGREL [Concomitant]
     Active Substance: CLOPIDOGREL BISULFATE
     Indication: Prophylaxis
     Route: 048
     Dates: start: 202006
  8. CLOPIDOGREL [Concomitant]
     Active Substance: CLOPIDOGREL BISULFATE
     Indication: Cerebrovascular accident
  9. INVOKANA [Concomitant]
     Active Substance: CANAGLIFLOZIN
     Indication: Type 2 diabetes mellitus
     Route: 048
     Dates: start: 20210521
  10. PREGABALIN [Concomitant]
     Active Substance: PREGABALIN
     Indication: Intervertebral disc degeneration
     Route: 048
     Dates: start: 20210521
  11. PREGABALIN [Concomitant]
     Active Substance: PREGABALIN
     Indication: Pain
  12. METFORMIN [Concomitant]
     Active Substance: METFORMIN HYDROCHLORIDE
     Indication: Type 2 diabetes mellitus
     Route: 048
     Dates: start: 2010
  13. ATORVASTATIN [Concomitant]
     Active Substance: ATORVASTATIN
     Indication: Hyperlipidaemia
     Dosage: EVERY BEDTIME
     Route: 048
     Dates: start: 2008
  14. CITALOPRAM [Concomitant]
     Active Substance: CITALOPRAM HYDROBROMIDE
     Indication: Insomnia
     Route: 048
     Dates: start: 2008
  15. PANTOPRAZOLE [Concomitant]
     Active Substance: PANTOPRAZOLE
     Indication: Gastrooesophageal reflux prophylaxis
     Route: 048
     Dates: start: 20210521
  16. FERROUS FUMARATE [Concomitant]
     Active Substance: FERROUS FUMARATE
     Indication: Nutritional supplementation
     Route: 048
     Dates: start: 202104
  17. VITAMIN B12 [Concomitant]
     Active Substance: CYANOCOBALAMIN
     Indication: Nutritional supplementation
     Route: 048
     Dates: start: 20210226

REACTIONS (1)
  - Anxiety disorder [Recovered/Resolved]

NARRATIVE: CASE EVENT DATE: 20210701
